FAERS Safety Report 6534648-5 (Version None)
Quarter: 2009Q4

REPORT INFORMATION
  Report Type: 
  Country: None (occurrence: None)
  Receive Date: 20091228
  Receipt Date: 20081203
  Transmission Date: 20100525
  Serious: Yes (Hospitalization)
  Sender: FDA-Public Use
  Company Number: US-002244

PATIENT
  Age: 52 Year
  Sex: Female
  Weight: 97.7 kg

DRUGS (2)
  1. MULTIHANCE [Suspect]
     Indication: DEAFNESS
     Dosage: 10MG QD INTRAVENOUS (NOT OTHERWISE SPECIFIED)
     Route: 042
     Dates: start: 20081202, end: 20081202
  2. MULTIHANCE [Suspect]
     Indication: NUCLEAR MAGNETIC RESONANCE IMAGING
     Dosage: 10MG QD INTRAVENOUS (NOT OTHERWISE SPECIFIED)
     Route: 042
     Dates: start: 20081202, end: 20081202

REACTIONS (1)
  - HYPERSENSITIVITY [None]
